FAERS Safety Report 6635446-4 (Version None)
Quarter: 2010Q1

REPORT INFORMATION
  Report Type: 
  Country: None (occurrence: None)
  Receive Date: 20100315
  Receipt Date: 20090812
  Transmission Date: 20100710
  Serious: No
  Sender: FDA-Public Use
  Company Number: US-ABBOTT-09P-163-0591276-00

PATIENT
  Age: 76 Year
  Sex: Male

DRUGS (6)
  1. DEPAKOTE [Suspect]
     Indication: SCHIZOPHRENIA, PARANOID TYPE
     Dates: end: 20090808
  2. DEPAKOTE [Suspect]
     Dates: start: 20090808
  3. RISPERDAL [Suspect]
     Indication: SCHIZOPHRENIA, PARANOID TYPE
     Dosage: UNKNOWN
  4. BENZTROPINE MESYLATE [Suspect]
     Indication: SCHIZOPHRENIA, PARANOID TYPE
     Dosage: UNKNOWN
  5. ZOCOR [Concomitant]
     Indication: BLOOD CHOLESTEROL INCREASED
     Dosage: UNKNOWN
  6. VITAMIN B-12 [Concomitant]
     Indication: VITAMIN SUPPLEMENTATION
     Dosage: UNKNOWN

REACTIONS (4)
  - COLONIC POLYP [None]
  - NEUTROPHIL COUNT INCREASED [None]
  - RED BLOOD CELL COUNT DECREASED [None]
  - WHITE BLOOD CELL COUNT DECREASED [None]
